FAERS Safety Report 15374014 (Version 1)
Quarter: 2018Q3

REPORT INFORMATION
  Report Type: Spontaneous
  Country: UA (occurrence: UA)
  Receive Date: 20180912
  Receipt Date: 20180912
  Transmission Date: 20181010
  Serious: Yes (Hospitalization)
  Sender: FDA-Public Use
  Company Number: UA-ACCORD-071746

PATIENT
  Age: 37 Year
  Sex: Female

DRUGS (1)
  1. GEMCITABINE ACCORD [Suspect]
     Active Substance: GEMCITABINE HYDROCHLORIDE
     Indication: OVARIAN EPITHELIAL CANCER
     Route: 042
     Dates: start: 20180705, end: 20180822

REACTIONS (1)
  - Peptic ulcer [Recovered/Resolved]

NARRATIVE: CASE EVENT DATE: 20180825
